FAERS Safety Report 8963161 (Version 2)
Quarter: 2013Q1

REPORT INFORMATION
  Report Type: Report from Study
  Country: US (occurrence: US)
  Receive Date: 20121214
  Receipt Date: 20130213
  Transmission Date: 20140127
  Serious: No
  Sender: FDA-Public Use
  Company Number: US-VERTEX PHARMACEUTICALS INC.-2012-026049

PATIENT
  Sex: Male
  Weight: 82 kg

DRUGS (7)
  1. VX-950 (TELAPREVIR) [Suspect]
     Indication: HEPATITIS C
     Dosage: 750 MG, TID
     Route: 048
     Dates: start: 2012
  2. PEGASYS [Suspect]
     Indication: HEPATITIS C
     Dosage: 180 ?G, QW
     Route: 058
     Dates: start: 2012
  3. RIBASPHERE [Suspect]
     Indication: HEPATITIS C
     Dosage: 3 DF, QD
     Route: 048
     Dates: start: 2012
  4. RIBASPHERE [Suspect]
     Dosage: 2 DF, BID
     Route: 048
  5. VITAMIN C [Concomitant]
     Dosage: 1 DF, QD
     Route: 048
  6. MILK THISTLE [Concomitant]
     Dosage: 1 DF, QD
     Route: 048
  7. ZOFRAN [Concomitant]
     Dosage: UNK, PRN

REACTIONS (4)
  - Blood count abnormal [Unknown]
  - Fatigue [Unknown]
  - Vomiting [Unknown]
  - Nausea [Unknown]
